FAERS Safety Report 20854855 (Version 2)
Quarter: 2023Q2

REPORT INFORMATION
  Report Type: Report from Study
  Country: CA (occurrence: CA)
  Receive Date: 20220520
  Receipt Date: 20230510
  Transmission Date: 20230722
  Serious: Yes (Other)
  Sender: FDA-Public Use
  Company Number: CA-NOVARTISPH-NVSC2021CA279548

PATIENT
  Age: 43 Year
  Sex: Male

DRUGS (3)
  1. HYRIMOZ [Suspect]
     Active Substance: ADALIMUMAB-ADAZ
     Indication: Crohn^s disease
     Dosage: 160 MG
     Route: 058
     Dates: start: 20211109
  2. HYRIMOZ [Suspect]
     Active Substance: ADALIMUMAB-ADAZ
     Dosage: 40 MG
     Route: 058
  3. CORTISONE [Concomitant]
     Active Substance: CORTISONE
     Indication: Arthralgia
     Dosage: UNK
     Route: 065

REACTIONS (7)
  - Crohn^s disease [Unknown]
  - Pain in extremity [Unknown]
  - Fatigue [Unknown]
  - Hypersomnia [Unknown]
  - Migraine [Unknown]
  - Inappropriate schedule of product administration [Unknown]
  - Product supply issue [Unknown]

NARRATIVE: CASE EVENT DATE: 20220511
